FAERS Safety Report 5160230-0 (Version None)
Quarter: 2006Q4

REPORT INFORMATION
  Report Type: 
  Country: None (occurrence: None)
  Receive Date: 20061120
  Receipt Date: 20061107
  Transmission Date: 20070319
  Serious: Yes (Hospitalization)
  Sender: FDA-Public Use
  Company Number: 2006137041

PATIENT
  Age: 26 Year
  Sex: Female
  Weight: 58.9676 kg

DRUGS (2)
  1. BENADRYL [Suspect]
     Indication: URTICARIA
     Dosage: 4 KAPSEALS EVERY 6 HOURS, ORAL
     Route: 048
     Dates: start: 20061027, end: 20061106
  2. BENADRYL [Suspect]
     Indication: URTICARIA
     Dosage: ^SIGNIFICANT AMOUNT^, TOPICAL
     Route: 061
     Dates: end: 20061107

REACTIONS (3)
  - CONDITION AGGRAVATED [None]
  - DRUG INEFFECTIVE [None]
  - URTICARIA [None]
